FAERS Safety Report 11933095 (Version 1)
Quarter: 2016Q1

REPORT INFORMATION
  Report Type: Spontaneous
  Country: GB (occurrence: GB)
  Receive Date: 20160121
  Receipt Date: 20160121
  Transmission Date: 20160526
  Serious: Yes (Other)
  Sender: FDA-Public Use
  Company Number: GB-AMGEN-GBRSP2016005992

PATIENT
  Age: 65 Year
  Sex: Female

DRUGS (1)
  1. ENBREL [Suspect]
     Active Substance: ETANERCEPT
     Indication: PRODUCT USED FOR UNKNOWN INDICATION
     Dosage: UNK
     Route: 065

REACTIONS (5)
  - Dizziness [Unknown]
  - Dyspnoea [Unknown]
  - Lower respiratory tract infection [Unknown]
  - Pain in extremity [Unknown]
  - Pruritus [Unknown]

NARRATIVE: CASE EVENT DATE: 20160108
